FAERS Safety Report 9626090 (Version 1)
Quarter: 2013Q4

REPORT INFORMATION
  Report Type: Spontaneous
  Country: US (occurrence: US)
  Receive Date: 20131016
  Receipt Date: 20131016
  Transmission Date: 20140711
  Serious: No
  Sender: FDA-Public Use
  Company Number: US-MYLANLABS-2013S1014530

PATIENT
  Age: 60 Year
  Sex: Female
  Weight: 70.31 kg

DRUGS (1)
  1. VALSARTAN AND HYDROCHLOROTHIAZIDE TABLETS [Suspect]
     Indication: HYPERTENSION
     Route: 048
     Dates: start: 201301, end: 201305

REACTIONS (1)
  - Cough [Recovered/Resolved]
